FAERS Safety Report 17468778 (Version 1)
Quarter: 2020Q1

REPORT INFORMATION
  Report Type: Spontaneous
  Country: US (occurrence: US)
  Receive Date: 20200227
  Receipt Date: 20200227
  Transmission Date: 20200409
  Serious: Yes (Death, Hospitalization, Other)
  Sender: FDA-Public Use
  Company Number: US-ACTELION-A-CH2020-201948

PATIENT
  Age: 28 Year
  Sex: Female

DRUGS (2)
  1. EPOPROSTENOL SODIUM. [Suspect]
     Active Substance: EPOPROSTENOL SODIUM
     Indication: PULMONARY HYPERTENSION
     Route: 042
  2. EPOPROSTENOL SODIUM. [Suspect]
     Active Substance: EPOPROSTENOL SODIUM
     Indication: VASCULAR RESISTANCE PULMONARY INCREASED

REACTIONS (10)
  - Uterine dilation and evacuation [Unknown]
  - Exposure during pregnancy [Unknown]
  - Pulmonary hypertension [Fatal]
  - Thrombosis [Unknown]
  - Intracardiac thrombus [Unknown]
  - Cardiac arrest [Recovered/Resolved]
  - Hypoxia [Fatal]
  - Foetal death [Unknown]
  - Haemorrhage [Unknown]
  - Hypotension [Unknown]
